FAERS Safety Report 12982487 (Version 2)
Quarter: 2016Q4

REPORT INFORMATION
  Report Type: Report from Study
  Country: JP (occurrence: JP)
  Receive Date: 20161129
  Receipt Date: 20161213
  Transmission Date: 20170207
  Serious: Yes (Death, Other)
  Sender: FDA-Public Use
  Company Number: JP-CELGENEUS-JPN-2016116227

PATIENT
  Age: 79 Year
  Sex: Female
  Weight: 36 kg

DRUGS (15)
  1. VIDAZA [Suspect]
     Active Substance: AZACITIDINE
     Dosage: 75 MG/M2
     Route: 065
     Dates: start: 20121024, end: 20121030
  2. VIDAZA [Suspect]
     Active Substance: AZACITIDINE
     Dosage: 75 MG/M2
     Route: 065
     Dates: start: 20130212, end: 20130216
  3. SULFAMETHOXAZOLE-TRIMETHOPRIM (SMZ) [Concomitant]
     Active Substance: SULFAMETHOXAZOLE\TRIMETHOPRIM
     Indication: PRODUCT USED FOR UNKNOWN INDICATION
     Route: 065
     Dates: start: 20121126, end: 20121214
  4. VIDAZA [Suspect]
     Active Substance: AZACITIDINE
     Dosage: 75 MG/M2
     Route: 065
     Dates: start: 20130108, end: 20130112
  5. VIDAZA [Suspect]
     Active Substance: AZACITIDINE
     Dosage: 75 MG/M2
     Route: 065
     Dates: start: 20130326, end: 20130330
  6. LEVOFLOXACIN HEMIHYDRATE [Concomitant]
     Active Substance: LEVOFLOXACIN
     Indication: PRODUCT USED FOR UNKNOWN INDICATION
     Route: 065
     Dates: start: 20120929, end: 20121014
  7. VIDAZA [Suspect]
     Active Substance: AZACITIDINE
     Dosage: 75 MG/M2
     Route: 065
     Dates: start: 20120930, end: 20121002
  8. VIDAZA [Suspect]
     Active Substance: AZACITIDINE
     Dosage: 75 MG/M2
     Route: 065
     Dates: start: 20130507, end: 20130511
  9. VIDAZA [Suspect]
     Active Substance: AZACITIDINE
     Dosage: 75 MG/M2
     Route: 065
     Dates: start: 20130903, end: 20130907
  10. VIDAZA [Suspect]
     Active Substance: AZACITIDINE
     Indication: MYELODYSPLASTIC SYNDROME
     Dosage: 75 MG/M2
     Route: 065
     Dates: start: 20120926, end: 20120929
  11. VIDAZA [Suspect]
     Active Substance: AZACITIDINE
     Dosage: 75 MG/M2
     Route: 065
     Dates: start: 20130730, end: 20130803
  12. FLUCONAZOLE. [Concomitant]
     Active Substance: FLUCONAZOLE
     Indication: PRODUCT USED FOR UNKNOWN INDICATION
     Route: 065
     Dates: start: 20121017, end: 20121214
  13. VIDAZA [Suspect]
     Active Substance: AZACITIDINE
     Dosage: 75 MG/M2
     Route: 065
     Dates: start: 20121126, end: 20121202
  14. VIDAZA [Suspect]
     Active Substance: AZACITIDINE
     Dosage: 75 MG/M2
     Route: 065
     Dates: start: 20130611, end: 20130615
  15. ITRIZOLE [Concomitant]
     Active Substance: ITRACONAZOLE
     Indication: PRODUCT USED FOR UNKNOWN INDICATION
     Route: 065
     Dates: start: 20120929, end: 20121016

REACTIONS (4)
  - Myelodysplastic syndrome [Fatal]
  - Injection site swelling [Recovered/Resolved]
  - Cytopenia [Recovered/Resolved]
  - Depressive symptom [Unknown]

NARRATIVE: CASE EVENT DATE: 20120926
